FAERS Safety Report 19164078 (Version 1)
Quarter: 2021Q2

REPORT INFORMATION
  Report Type: Spontaneous
  Country: US (occurrence: US)
  Receive Date: 20210421
  Receipt Date: 20210421
  Transmission Date: 20210717
  Serious: No
  Sender: FDA-Public Use
  Company Number: US-ORGANON-2101USA005819

PATIENT
  Age: 26 Year
  Sex: Female
  Weight: 120.18 kg

DRUGS (1)
  1. NEXPLANON [Suspect]
     Active Substance: ETONOGESTREL
     Dosage: 1 IMPLANT, EVERY 3 YEAR IN THE LEFT ARM (DOSE REPORTED AS 68 MG)
     Route: 059
     Dates: start: 20191112, end: 20201230

REACTIONS (3)
  - Complication of device removal [Recovered/Resolved]
  - Device breakage [Recovered/Resolved]
  - Intermenstrual bleeding [Unknown]

NARRATIVE: CASE EVENT DATE: 20201015
